FAERS Safety Report 17168234 (Version 1)
Quarter: 2019Q4

REPORT INFORMATION
  Report Type: Spontaneous
  Country: US (occurrence: US)
  Receive Date: 20191125
  Receipt Date: 20191125
  Transmission Date: 20200122
  Serious: Yes (Hospitalization)
  Sender: FDA-Public Use
  Company Number: None

PATIENT
  Age: 25 Year
  Weight: 136.08 kg

DRUGS (1)
  1. MESNEX [Suspect]
     Active Substance: MESNA
     Indication: TESTIS CANCER
     Dosage: 1TAB 4HRS AND 8HRS AFTER IFOSFAMIDE ON DAYS 1-5 EVERY 3 WEEKS
     Route: 048
     Dates: start: 20191101

REACTIONS (1)
  - Malignant neoplasm progression [None]

NARRATIVE: CASE EVENT DATE: 20191125
